FAERS Safety Report 14318138 (Version 2)
Quarter: 2019Q3

REPORT INFORMATION
  Report Type: Spontaneous
  Country: US (occurrence: US)
  Receive Date: 20171222
  Receipt Date: 20190822
  Transmission Date: 20191004
  Serious: Yes (Hospitalization)
  Sender: FDA-Public Use
  Company Number: US-VERTEX PHARMACEUTICALS-2017-007107

PATIENT
  Age: 15 Year
  Sex: Male

DRUGS (11)
  1. HUMALOG [Concomitant]
     Active Substance: INSULIN LISPRO
     Indication: HYPERGLYCAEMIA
     Dosage: UNK, PRN
     Route: 058
  2. PREVACID [Concomitant]
     Active Substance: LANSOPRAZOLE
     Dosage: 30 MG, DAILY
     Route: 048
  3. HYPERTONIC SALINE SOLUTION [Concomitant]
     Active Substance: SODIUM CHLORIDE
  4. ORKAMBI [Suspect]
     Active Substance: IVACAFTOR\LUMACAFTOR
     Indication: CYSTIC FIBROSIS
     Dosage: 200/125MG, BID
     Route: 048
     Dates: start: 20150912
  5. ALBUTEROL;IPRATROPIUM [Concomitant]
     Dosage: 3 ML
     Route: 055
  6. PERTZYE [Concomitant]
     Active Substance: PANCRELIPASE AMYLASE\PANCRELIPASE LIPASE\PANCRELIPASE PROTEASE
     Dosage: 5 CAPSULES BEFORE MEALS
     Route: 048
  7. CAYSTON [Concomitant]
     Active Substance: AZTREONAM
  8. DORNASE ALFA. [Concomitant]
     Active Substance: DORNASE ALFA
     Dosage: 2.5 MG, EVERY 24 HRS
     Route: 055
  9. LEVEMIR [Concomitant]
     Active Substance: INSULIN DETEMIR
     Dosage: 25 UNITS, EVERY 24 HRS
     Route: 058
  10. TOBI [Concomitant]
     Active Substance: TOBRAMYCIN
  11. PROAIR HFA [Concomitant]
     Active Substance: ALBUTEROL SULFATE

REACTIONS (2)
  - Device related thrombosis [Recovering/Resolving]
  - Device related infection [Recovering/Resolving]

NARRATIVE: CASE EVENT DATE: 201710
